FAERS Safety Report 15532825 (Version 3)
Quarter: 2019Q1

REPORT INFORMATION
  Report Type: Report from Study
  Country: JP (occurrence: JP)
  Receive Date: 20181021
  Receipt Date: 20190218
  Transmission Date: 20190417
  Serious: Yes (Hospitalization, Other)
  Sender: FDA-Public Use
  Company Number: JP-AMGEN-JPNCT2018143641

PATIENT
  Age: 81 Year
  Sex: Male
  Weight: 54 kg

DRUGS (37)
  1. DARBEPOETIN ALFA [Suspect]
     Active Substance: DARBEPOETIN ALFA
     Dosage: 10 MUG, QWK
     Route: 051
     Dates: start: 20180813, end: 20180815
  2. DARBEPOETIN ALFA [Suspect]
     Active Substance: DARBEPOETIN ALFA
     Dosage: 10 MUG, QWK
     Route: 051
     Dates: start: 20180924
  3. DARBEPOETIN ALFA [Suspect]
     Active Substance: DARBEPOETIN ALFA
     Dosage: 10 MUG, QWK
     Route: 051
     Dates: start: 20180928
  4. BETAMETHASONE SODIUM PHOSPHATE [Concomitant]
     Active Substance: BETAMETHASONE SODIUM PHOSPHATE
     Indication: MYCOTIC ENDOPHTHALMITIS
     Dosage: UNK, SEVERAL TIMES A DAY, APPROPRIATE DOSE
     Route: 047
     Dates: start: 20180816
  5. LEVOFLOXACIN HEMIHYDRATE [Concomitant]
     Active Substance: LEVOFLOXACIN
     Indication: MYCOTIC ENDOPHTHALMITIS
     Dosage: UNK UNK, QID, APPROPRIATE DOSE
     Route: 047
     Dates: start: 20180921
  6. WARFARIN [Concomitant]
     Active Substance: WARFARIN
     Indication: ATRIAL FIBRILLATION
     Dosage: 2.55 MG, QD
     Route: 048
     Dates: start: 20180817
  7. ATORVASTATIN CALCIUM. [Concomitant]
     Active Substance: ATORVASTATIN CALCIUM
     Indication: DYSLIPIDAEMIA
     Dosage: 10 MG, QD
     Route: 048
  8. ESZOPICLONE. [Concomitant]
     Active Substance: ESZOPICLONE
     Indication: INSOMNIA
     Dosage: 2 MG, QD
     Route: 048
  9. CYANOCOBALAMIN. [Concomitant]
     Active Substance: CYANOCOBALAMIN
     Indication: VITAMIN SUPPLEMENTATION
     Dosage: 1000 MUG, ON THE DAY OF DIALYSIS
     Route: 042
  10. KETOPROFEN. [Concomitant]
     Active Substance: KETOPROFEN
     Indication: CERVICOBRACHIAL SYNDROME
     Dosage: UNK, AS NECESSARY, APPROPRIATE DOSE
  11. DARBEPOETIN ALFA [Suspect]
     Active Substance: DARBEPOETIN ALFA
     Dosage: 10 MUG, QWK
     Route: 051
     Dates: start: 20180618, end: 20180716
  12. SODIUM RABEPRAZOLE [Concomitant]
     Active Substance: RABEPRAZOLE SODIUM
     Indication: PROPHYLAXIS AGAINST GASTROINTESTINAL ULCER
     Dosage: 10 MG, QD
     Route: 048
  13. INSULIN GLULISINE [Concomitant]
     Active Substance: INSULIN GLULISINE
     Indication: TYPE 2 DIABETES MELLITUS
     Dosage: 2 MG/KG, TID
     Route: 058
  14. EPALRESTAT [Concomitant]
     Active Substance: EPALRESTAT
     Indication: DIABETIC RETINOPATHY
     Dosage: 50 MG, TID
     Route: 048
  15. MYDRIN P [Concomitant]
     Active Substance: PHENYLEPHRINE HYDROCHLORIDE\TROPICAMIDE
     Indication: MYCOTIC ENDOPHTHALMITIS
     Dosage: 1 GTT, TID
     Route: 047
     Dates: start: 20180816, end: 20181004
  16. GATIFLOXACIN. [Concomitant]
     Active Substance: GATIFLOXACIN
     Indication: MYCOTIC ENDOPHTHALMITIS
     Dosage: UNK UNK, QID, APPROPRIATE DOSE
     Route: 047
     Dates: start: 20180830
  17. AMIODARONE HYDROCHLORIDE. [Concomitant]
     Active Substance: AMIODARONE HYDROCHLORIDE
     Indication: ATRIAL FIBRILLATION
     Dosage: 50 MG, QD
     Route: 048
  18. VILDAGLIPTIN [Concomitant]
     Active Substance: VILDAGLIPTIN
     Indication: TYPE 2 DIABETES MELLITUS
     Dosage: 50 MG, QD
     Route: 048
  19. FERROUS SODIUM CITRATE [Concomitant]
     Active Substance: SODIUM FERROUS CITRATE
     Indication: MINERAL SUPPLEMENTATION
     Dosage: 100 MG, QD
     Route: 048
  20. BISOPROLOL FUMARATE. [Concomitant]
     Active Substance: BISOPROLOL FUMARATE
     Indication: CARDIAC FAILURE CHRONIC
     Dosage: 0.625 MG, QD
     Route: 048
  21. PRANOPROFEN [Concomitant]
     Active Substance: PRANOPROFEN
     Indication: MYCOTIC ENDOPHTHALMITIS
     Dosage: 1 GTT, QID
     Route: 047
     Dates: start: 20180813
  22. LEVOTHYROXINE SODIUM. [Concomitant]
     Active Substance: LEVOTHYROXINE SODIUM
     Indication: HYPOTHYROIDISM
     Dosage: 50 MUG, QD
     Route: 048
  23. PREDNISOLONE. [Concomitant]
     Active Substance: PREDNISOLONE
     Indication: MYCOTIC ENDOPHTHALMITIS
     Dosage: 20 MG, BID
     Route: 048
     Dates: start: 20180825, end: 20180827
  24. DARBEPOETIN ALFA [Suspect]
     Active Substance: DARBEPOETIN ALFA
     Dosage: 10 MUG, QWK
     Route: 051
     Dates: start: 20180910, end: 20180915
  25. HERBAL EXTRACT NOS [Concomitant]
     Active Substance: HERBALS
     Dosage: UNK
     Route: 065
  26. BETAMETHASONE SODIUM PHOSPHATE [Concomitant]
     Active Substance: BETAMETHASONE SODIUM PHOSPHATE
     Indication: RETINAL DETACHMENT
  27. OFLOXACIN. [Concomitant]
     Active Substance: OFLOXACIN
     Indication: MYCOTIC ENDOPHTHALMITIS
     Dosage: UNK UNK, QD, APPROPRIATE DOSE
     Route: 047
     Dates: start: 20180921
  28. RINDERON A [Concomitant]
     Active Substance: BETAMETHASONE SODIUM PHOSPHATE\NEOMYCIN SULFATE
     Indication: MYCOTIC ENDOPHTHALMITIS
     Dosage: UNK UNK, QD, APPROPRIATE DOSE
     Route: 047
     Dates: start: 20180813, end: 20180830
  29. PREDNISOLONE. [Concomitant]
     Active Substance: PREDNISOLONE
     Dosage: 7.5 MG, BID
     Route: 048
     Dates: start: 20180827, end: 20180904
  30. DARBEPOETIN ALFA [Suspect]
     Active Substance: DARBEPOETIN ALFA
     Indication: NEPHROGENIC ANAEMIA
     Dosage: 15 MUG, QWK
     Route: 051
     Dates: start: 20180611, end: 20180617
  31. DARBEPOETIN ALFA [Suspect]
     Active Substance: DARBEPOETIN ALFA
     Dosage: 5 MUG, QWK
     Route: 051
     Dates: start: 20180723, end: 20180806
  32. LAXATIVE [Concomitant]
     Active Substance: UNSPECIFIED INGREDIENT
     Indication: CONSTIPATION
     Dosage: UNK UNK, PRN, APPROPRIATE DOSE
     Route: 048
  33. FOSFLUCONAZOLE [Concomitant]
     Active Substance: FOSFLUCONAZOLE
     Indication: MYCOTIC ENDOPHTHALMITIS
     Dosage: 126.15 MG, ON THE DAY OF DIALYSIS
     Route: 042
     Dates: start: 20180906
  34. BROMFENAC SODIUM HYDRATE [Concomitant]
     Indication: MYCOTIC ENDOPHTHALMITIS
     Dosage: UNK UNK, BID, APPROPRIATE DOSE
     Route: 047
     Dates: start: 20180921
  35. MAINTATE [Suspect]
     Active Substance: BISOPROLOL FUMARATE
     Indication: CARDIAC FAILURE CHRONIC
     Dosage: 0.625 MG, QD
     Route: 048
  36. PIRFENIDONE. [Concomitant]
     Active Substance: PIRFENIDONE
     Indication: INTERSTITIAL LUNG DISEASE
     Dosage: 600 MG, BID
     Route: 048
  37. RACOL NF [Concomitant]
     Indication: NUTRITIONAL SUPPLEMENTATION
     Dosage: UNK UNK, PRN, APPROPRIATE DOSE
     Route: 048

REACTIONS (2)
  - Retinal detachment [Recovering/Resolving]
  - Mycotic endophthalmitis [Recovering/Resolving]

NARRATIVE: CASE EVENT DATE: 20180910
